FAERS Safety Report 4843749-9 (Version None)
Quarter: 2005Q4

REPORT INFORMATION
  Report Type: 
  Country: None (occurrence: None)
  Receive Date: 20051202
  Receipt Date: 20051121
  Transmission Date: 20060501
  Serious: Yes (Disabling)
  Sender: FDA-Public Use
  Company Number: 2005GB02268

PATIENT
  Age: 71 Year
  Sex: Female
  Weight: 57.2 kg

DRUGS (2)
  1. TAMOXIFEN [Suspect]
     Indication: BREAST CANCER
     Route: 048
     Dates: start: 20030917, end: 20040825
  2. ANASTROZOLE [Suspect]
     Indication: BREAST CANCER
     Route: 048
     Dates: start: 20040906

REACTIONS (3)
  - DYSPHAGIA [None]
  - DYSPHONIA [None]
  - EPIGLOTTIC MASS [None]
